FAERS Safety Report 7486716-1 (Version None)
Quarter: 2011Q2

REPORT INFORMATION
  Report Type: 
  Country: None (occurrence: None)
  Receive Date: 20110517
  Receipt Date: 20110511
  Transmission Date: 20111010
  Serious: Yes (Hospitalization, Other)
  Sender: FDA-Public Use
  Company Number: JP-PFIZER INC-2011082669

PATIENT
  Age: 85 Year
  Sex: Female

DRUGS (4)
  1. LYRICA [Suspect]
     Indication: BACK PAIN
     Dosage: 150 MG, 1X/DAY AFTER A MEAL
     Route: 048
     Dates: start: 20110330, end: 20110401
  2. MENATETRENONE [Concomitant]
     Indication: OSTEOPOROSIS
     Dosage: 45 MG, DAILY
     Route: 048
     Dates: start: 20110329
  3. LYRICA [Suspect]
     Indication: HYPOAESTHESIA
  4. VIVIANT [Concomitant]
     Indication: OSTEOPOROSIS
     Dosage: 20 MG, DAILY
     Route: 048
     Dates: start: 20110101

REACTIONS (3)
  - NEAR DROWNING [None]
  - PNEUMONIA ASPIRATION [None]
  - SOMNOLENCE [None]
